FAERS Safety Report 4408769-7 (Version None)
Quarter: 2004Q3

REPORT INFORMATION
  Report Type: 
  Country: None (occurrence: None)
  Receive Date: 20040727
  Receipt Date: 20040716
  Transmission Date: 20050211
  Serious: Yes (Hospitalization)
  Sender: FDA-Public Use
  Company Number: GB-BRISTOL-MYERS SQUIBB COMPANY-12647053

PATIENT
  Age: 61 Year
  Sex: Female

DRUGS (7)
  1. METFORMIN HCL [Suspect]
     Indication: DIABETES MELLITUS NON-INSULIN-DEPENDENT
  2. ASPIRIN [Concomitant]
  3. ATENOLOL [Concomitant]
  4. CLOPIDOGREL BISULFATE [Concomitant]
  5. LISINOPRIL [Concomitant]
  6. NATEGLINIDE [Concomitant]
  7. IBUPROFEN [Concomitant]

REACTIONS (2)
  - LACTIC ACIDOSIS [None]
  - PANCREATITIS ACUTE [None]
